FAERS Safety Report 10258523 (Version 1)
Quarter: 2014Q2

REPORT INFORMATION
  Report Type: Spontaneous
  Country: US (occurrence: None)
  Receive Date: 20140624
  Receipt Date: 20140624
  Transmission Date: 20141212
  Serious: No
  Sender: FDA-Public Use
  Company Number: None

PATIENT
  Age: 19 Year
  Sex: Female

DRUGS (1)
  1. MAKENA [Suspect]
     Dosage: LESS THAN ONE MONTH.
     Route: 030

REACTIONS (2)
  - Abortion spontaneous [None]
  - Exposure during pregnancy [None]
